FAERS Safety Report 6930257-4 (Version None)
Quarter: 2010Q3

REPORT INFORMATION
  Report Type: 
  Country: None (occurrence: None)
  Receive Date: 20100818
  Receipt Date: 20100816
  Transmission Date: 20110219
  Serious: Yes (Other)
  Sender: FDA-Public Use
  Company Number: US-PURDUE-USA-2010-0045323

PATIENT
  Age: 50 Year
  Sex: Female
  Weight: 48.254 kg

DRUGS (7)
  1. RYZOLT [Suspect]
     Indication: PAIN
     Dosage: 300 MG, DAILY
     Dates: start: 20100721, end: 20100701
  2. RYZOLT [Suspect]
     Indication: FIBROMYALGIA
  3. RYZOLT [Suspect]
  4. GEODON [Concomitant]
     Indication: AFFECTIVE DISORDER
     Dosage: 20 MG, BID
     Dates: start: 20100701
  5. LAMICTAL [Concomitant]
     Indication: AFFECTIVE DISORDER
     Dosage: 100 MG, DAILY
  6. LYRICA [Concomitant]
     Indication: FIBROMYALGIA
     Dosage: 50 MG, BID
  7. ADVAIR DISKUS 100/50 [Concomitant]
     Indication: ASTHMA
     Dosage: UNK PUFF, BID

REACTIONS (3)
  - CONVULSION [None]
  - LOSS OF CONSCIOUSNESS [None]
  - TONIC CLONIC MOVEMENTS [None]
